FAERS Safety Report 5761806-X (Version None)
Quarter: 2008Q2

REPORT INFORMATION
  Report Type: 
  Country: None (occurrence: None)
  Receive Date: 20080606
  Receipt Date: 20080527
  Transmission Date: 20081010
  Serious: Yes (Hospitalization)
  Sender: FDA-Public Use
  Company Number: JP-PFIZER INC-2008046618

PATIENT
  Age: 61 Year
  Sex: Male

DRUGS (9)
  1. AMLODIPINE [Suspect]
     Dosage: DAILY DOSE:5MG-FREQ:1 IN 1 D
     Route: 048
  2. OLMETEC [Suspect]
     Indication: ESSENTIAL HYPERTENSION
     Dosage: DAILY DOSE:20MG-FREQ:1 IN 1D
     Route: 048
  3. FLUITRAN [Suspect]
     Dosage: DAILY DOSE:.5MG-FREQ:1 IN 1 D
     Route: 048
     Dates: start: 20060515, end: 20060714
  4. ENALAPRIL MALEATE [Concomitant]
     Route: 048
     Dates: start: 20060515, end: 20060529
  5. VASOLAN [Concomitant]
     Dosage: DAILY DOSE:40MG-FREQ:1 IN 1 D
     Route: 048
     Dates: start: 20060126
  6. ASPIRIN [Concomitant]
  7. LOCHOL [Concomitant]
  8. ALLOPURINOL [Concomitant]
  9. FAMOTIDINE [Concomitant]

REACTIONS (1)
  - CEREBRAL INFARCTION [None]
